FAERS Safety Report 4430964-1 (Version None)
Quarter: 2004Q3

REPORT INFORMATION
  Report Type: 
  Country: None (occurrence: None)
  Receive Date: 20040820
  Receipt Date: 20040818
  Transmission Date: 20050211
  Serious: Yes (Hospitalization)
  Sender: FDA-Public Use
  Company Number: DL2004208

PATIENT
  Age: 32 Year
  Sex: Female

DRUGS (2)
  1. MIFEPRISTONE TABLETS, 200 MG (DANCO LABS) [Suspect]
     Indication: ABORTION INDUCED
     Dosage: 200 MG ORAL
     Route: 048
     Dates: start: 20040709
  2. MISOPROSTOL [Suspect]
     Dosage: 800 MCG VAGINAL
     Route: 067
     Dates: start: 20040711

REACTIONS (3)
  - ECTOPIC PREGNANCY [None]
  - HAEMORRHAGE [None]
  - MUSCLE CRAMP [None]
